FAERS Safety Report 20383587 (Version 1)
Quarter: 2022Q1

REPORT INFORMATION
  Report Type: Spontaneous
  Country: US (occurrence: US)
  Receive Date: 20220127
  Receipt Date: 20220127
  Transmission Date: 20220423
  Serious: Yes (Other)
  Sender: FDA-Public Use
  Company Number: US-GLAXOSMITHKLINE-US2022GSK013053

PATIENT
  Sex: Male

DRUGS (2)
  1. RANITIDINE [Suspect]
     Active Substance: RANITIDINE
     Indication: Intestinal fistula
     Dosage: UNK, QD
     Route: 065
     Dates: start: 200301, end: 201902
  2. RANITIDINE [Suspect]
     Active Substance: RANITIDINE
     Indication: Intestinal fistula
     Dosage: UNK, QD
     Route: 065
     Dates: start: 200301, end: 201902

REACTIONS (1)
  - Thyroid cancer [Unknown]
